FAERS Safety Report 5114621-4 (Version None)
Quarter: 2006Q3

REPORT INFORMATION
  Report Type: 
  Country: None (occurrence: None)
  Receive Date: 20060921
  Receipt Date: 20060904
  Transmission Date: 20061208
  Serious: Yes (Hospitalization)
  Sender: FDA-Public Use
  Company Number: S06-SWI-03799-01

PATIENT
  Age: 66 Year
  Sex: Male

DRUGS (5)
  1. CIPRALEX (ESCITALOPRAM) [Suspect]
     Dosage: 20 MG QD PO
     Route: 048
  2. NOCTAMID FORTE [Suspect]
     Dates: end: 20060204
  3. RISPERDAL [Suspect]
     Dosage: 4 MG QD PO
     Route: 048
  4. ASPIRIN [Concomitant]
  5. NORVASC [Concomitant]

REACTIONS (6)
  - ALCOHOLISM [None]
  - COORDINATION ABNORMAL [None]
  - DRUG ABUSER [None]
  - DRUG TOXICITY [None]
  - SLUGGISHNESS [None]
  - SOMNOLENCE [None]
